FAERS Safety Report 24700859 (Version 2)
Quarter: 2025Q2

REPORT INFORMATION
  Report Type: Spontaneous
  Country: DE (occurrence: DE)
  Receive Date: 20241205
  Receipt Date: 20250411
  Transmission Date: 20250717
  Serious: Yes (Other)
  Sender: ABBVIE
  Company Number: DE-ABBVIE-6028112

PATIENT
  Age: 60 Year
  Sex: Male
  Weight: 75 kg

DRUGS (1)
  1. GLECAPREVIR\PIBRENTASVIR [Suspect]
     Active Substance: GLECAPREVIR\PIBRENTASVIR
     Indication: Chronic hepatitis C
     Route: 048
     Dates: start: 20240912, end: 20241002

REACTIONS (18)
  - Hepatic cirrhosis [Unknown]
  - Blood bilirubin increased [Recovered/Resolved]
  - Blood albumin decreased [Unknown]
  - Gamma-glutamyltransferase increased [Not Recovered/Not Resolved]
  - Aspartate aminotransferase increased [Not Recovered/Not Resolved]
  - Alanine aminotransferase increased [Not Recovered/Not Resolved]
  - General physical health deterioration [Unknown]
  - Blood pressure increased [Not Recovered/Not Resolved]
  - Chronic hepatic failure [Unknown]
  - Hepatic cirrhosis [Unknown]
  - Splenomegaly [Unknown]
  - Fatigue [Not Recovered/Not Resolved]
  - Liver induration [Unknown]
  - Spleen palpable [Unknown]
  - Cholelithiasis [Unknown]
  - Splenomegaly [Unknown]
  - Ocular icterus [Unknown]
  - Yellow skin [Unknown]

NARRATIVE: CASE EVENT DATE: 20240101
